FAERS Safety Report 14062966 (Version 1)
Quarter: 2017Q4

REPORT INFORMATION
  Report Type: Spontaneous
  Country: US (occurrence: US)
  Receive Date: 20171009
  Receipt Date: 20171009
  Transmission Date: 20180321
  Serious: No
  Sender: FDA-Public Use
  Company Number: US-JNJFOC-20170928298

PATIENT
  Age: 55 Year
  Sex: Female
  Weight: 49.9 kg

DRUGS (2)
  1. SUDAFED 24 HOUR [Suspect]
     Active Substance: PSEUDOEPHEDRINE HYDROCHLORIDE
     Indication: SINUS CONGESTION
     Dosage: 1 AT A TIME, 2 OR 3 DAYS IN A ROW
     Route: 048
  2. SUDAFED 24 HOUR [Suspect]
     Active Substance: PSEUDOEPHEDRINE HYDROCHLORIDE
     Indication: VIRAL UPPER RESPIRATORY TRACT INFECTION
     Dosage: 1 AT A TIME, 2 OR 3 DAYS IN A ROW
     Route: 048

REACTIONS (1)
  - Drug ineffective [Unknown]
